FAERS Safety Report 5114248-4 (Version None)
Quarter: 2006Q3

REPORT INFORMATION
  Report Type: 
  Country: None (occurrence: None)
  Receive Date: 20060802
  Receipt Date: 20060615
  Transmission Date: 20061208
  Serious: No
  Sender: FDA-Public Use
  Company Number: 200615468US

PATIENT
  Age: 73 Year
  Sex: Female

DRUGS (3)
  1. KETEK [Suspect]
     Indication: SINUSITIS
     Dosage: 400 MG PO
     Route: 048
     Dates: start: 20060530, end: 20060608
  2. PARACETAMOL [Concomitant]
  3. HYDROCHODONE BITARTRATE (VICODIN) [Concomitant]

REACTIONS (6)
  - BRADYPHRENIA [None]
  - CONSTIPATION [None]
  - DIARRHOEA [None]
  - DISORIENTATION [None]
  - NAUSEA [None]
  - RASH [None]
